FAERS Safety Report 16834430 (Version 2)
Quarter: 2019Q4

REPORT INFORMATION
  Report Type: Report from Study
  Country: RU (occurrence: RU)
  Receive Date: 20190920
  Receipt Date: 20191127
  Transmission Date: 20200122
  Serious: Yes (Other)
  Sender: FDA-Public Use
  Company Number: PHHY2019RU215343

PATIENT
  Age: 70 Year
  Sex: Female

DRUGS (2)
  1. TRAMETINIB [Suspect]
     Active Substance: TRAMETINIB
     Indication: METASTATIC MALIGNANT MELANOMA
     Dosage: UNK
     Route: 065
     Dates: start: 20190617
  2. DABRAFENIB [Suspect]
     Active Substance: DABRAFENIB
     Indication: METASTATIC MALIGNANT MELANOMA
     Dosage: UNK
     Route: 065
     Dates: start: 20190617

REACTIONS (8)
  - Thrombocytopenia [Unknown]
  - Hyperfibrinogenaemia [Unknown]
  - Blood test abnormal [Unknown]
  - Liver disorder [Unknown]
  - Nephropathy [Unknown]
  - Hyperglycaemia [Unknown]
  - Leukopenia [Unknown]
  - Atrioventricular block first degree [Unknown]

NARRATIVE: CASE EVENT DATE: 20190703
